FAERS Safety Report 13165239 (Version 3)
Quarter: 2017Q2

REPORT INFORMATION
  Report Type: Spontaneous
  Country: JP (occurrence: JP)
  Receive Date: 20170131
  Receipt Date: 20170421
  Transmission Date: 20170830
  Serious: Yes (Disabling)
  Sender: FDA-Public Use
  Company Number: JP-SANTEN-201700105

PATIENT
  Age: 64 Year
  Sex: Female

DRUGS (3)
  1. CRAVIT [Suspect]
     Active Substance: LEVOFLOXACIN
     Indication: INFECTION PROPHYLAXIS
     Dosage: UNK, TID, OD
     Route: 047
     Dates: start: 20160503, end: 20160509
  2. EYLEA [Suspect]
     Active Substance: AFLIBERCEPT
     Indication: RETINAL VEIN OCCLUSION
     Dosage: UNK
     Route: 031
  3. KENACORT [Concomitant]
     Active Substance: TRIAMCINOLONE
     Dosage: UNK
     Dates: end: 201602

REACTIONS (3)
  - Optic ischaemic neuropathy [Not Recovered/Not Resolved]
  - Glaucoma [Unknown]
  - Macular oedema [Recovering/Resolving]

NARRATIVE: CASE EVENT DATE: 20160525
